FAERS Safety Report 5596063-0 (Version None)
Quarter: 2008Q1

REPORT INFORMATION
  Report Type: 
  Country: None (occurrence: None)
  Receive Date: 20080118
  Receipt Date: 20080109
  Transmission Date: 20080703
  Serious: Yes (Other)
  Sender: FDA-Public Use
  Company Number: GB-ROCHE-540739

PATIENT
  Age: 55 Year
  Sex: Male

DRUGS (5)
  1. INTERFERON ALFA-2A [Suspect]
     Indication: HEPATITIS C
     Dosage: DRUG NAME REPORTED AS ^IFN^.
     Route: 065
     Dates: start: 19960101, end: 19960101
  2. INTERFERON ALFA-2A [Suspect]
     Route: 065
  3. RIBAVIRIN [Suspect]
     Indication: HEPATITIS C
     Route: 065
     Dates: start: 19960101, end: 19960101
  4. RIBAVIRIN [Suspect]
     Route: 065
  5. MESALAMINE [Concomitant]

REACTIONS (4)
  - DEPRESSION [None]
  - FACIAL PALSY [None]
  - FATIGUE [None]
  - HEPATIC FIBROSIS [None]
